FAERS Safety Report 11801173 (Version 3)
Quarter: 2021Q1

REPORT INFORMATION
  Report Type: Report from Study
  Country: US (occurrence: US)
  Receive Date: 20151204
  Receipt Date: 20210224
  Transmission Date: 20210419
  Serious: Yes (Hospitalization, Other)
  Sender: FDA-Public Use
  Company Number: US-TEVA-612701USA

PATIENT
  Age: 40 Year
  Sex: Female
  Weight: 53.5 kg

DRUGS (18)
  1. CARBOPLATIN. [Suspect]
     Active Substance: CARBOPLATIN
     Dosage: CHEMOTHERAPY SEGMENT 1
     Route: 042
     Dates: start: 20150710, end: 20150710
  2. ABT?888 (VELIPARIB) (BLINDED) [Suspect]
     Active Substance: VELIPARIB
     Indication: TRIPLE NEGATIVE BREAST CANCER
     Dosage: CHEMOTHERAPY SEGMENT 1
     Route: 048
     Dates: start: 20150528, end: 20150618
  3. ABT?888 (VELIPARIB) (BLINDED) [Suspect]
     Active Substance: VELIPARIB
     Route: 042
     Dates: start: 20150618, end: 20150708
  4. PACLITAXEL. [Suspect]
     Active Substance: PACLITAXEL
     Indication: TRIPLE NEGATIVE BREAST CANCER
     Route: 042
     Dates: start: 20150526, end: 20150820
  5. CARBOPLATIN. [Suspect]
     Active Substance: CARBOPLATIN
     Dosage: CHEMOTHERAPY SEGMENT 1
     Route: 042
     Dates: start: 20150618, end: 20150618
  6. CYCLOPHOSPHAMIDE. [Suspect]
     Active Substance: CYCLOPHOSPHAMIDE
     Indication: TRIPLE NEGATIVE BREAST CANCER
     Dosage: DAY 1 OF FOUR 2?WEEK CYCLES IN CHEMOTHERAPY SEGMENT 2 (600 MG/M2)
     Route: 042
     Dates: start: 20150827, end: 20150827
  7. CYCLOPHOSPHAMIDE. [Suspect]
     Active Substance: CYCLOPHOSPHAMIDE
     Dosage: DAY 1 OF FOUR 2?WEEK CYCLES IN CHEMOTHERAPY SEGMENT 2 (500 MG/M2)
     Route: 042
     Dates: start: 20150925
  8. CARBOPLATIN. [Suspect]
     Active Substance: CARBOPLATIN
     Indication: TRIPLE NEGATIVE BREAST CANCER
     Dosage: CHEMOTHERAPY SEGMENT 1
     Route: 042
     Dates: start: 20150526, end: 20150526
  9. ABT?888 (VELIPARIB) (BLINDED) [Suspect]
     Active Substance: VELIPARIB
     Route: 042
     Dates: start: 20150711, end: 20150731
  10. WELLBUTRIN [Concomitant]
     Active Substance: BUPROPION HYDROCHLORIDE
     Indication: DEPRESSION
     Dosage: 150 MILLIGRAM DAILY;
     Route: 048
     Dates: start: 2015
  11. DOXORUBICIN [Suspect]
     Active Substance: DOXORUBICIN
     Indication: TRIPLE NEGATIVE BREAST CANCER
     Dosage: DAY 1 OF FOUR 2?WEEK CYCLES IN CHEMOTHERAPY SEGMENT 2 (60 MG/M2)
     Route: 042
     Dates: start: 20150827, end: 20150827
  12. CARBOPLATIN. [Suspect]
     Active Substance: CARBOPLATIN
     Dosage: CHEMOTHERAPY SEGMENT 1/D1 OF FOUR 21?DAY CYCLES IN CHEMO SGMT 1; DOSAGE: 6AUC
     Route: 042
     Dates: start: 20150731, end: 20150731
  13. AMBIEN [Concomitant]
     Active Substance: ZOLPIDEM TARTRATE
     Indication: INSOMNIA
     Dosage: 10 MILLIGRAM DAILY;
     Route: 048
     Dates: start: 2015
  14. XANAX [Concomitant]
     Active Substance: ALPRAZOLAM
     Indication: INSOMNIA
     Dosage: .5 MILLIGRAM DAILY;
     Dates: start: 2015
  15. XANAX [Concomitant]
     Active Substance: ALPRAZOLAM
     Indication: ANXIETY
  16. ZOFRAN [Concomitant]
     Active Substance: ONDANSETRON HYDROCHLORIDE
     Indication: PROPHYLAXIS OF NAUSEA AND VOMITING
     Dosage: AS REQUIRED
     Route: 048
     Dates: start: 20150526, end: 20151218
  17. ABT?888 (VELIPARIB) (BLINDED) [Suspect]
     Active Substance: VELIPARIB
     Route: 042
     Dates: start: 20150801, end: 20150821
  18. DOXORUBICIN [Suspect]
     Active Substance: DOXORUBICIN
     Dosage: DAY 1 OF FOUR 2?WEEK CYCLES IN CHEMOTHERAPY SEGMENT 2 (50 MG/M2)
     Route: 042
     Dates: start: 20150925

REACTIONS (2)
  - Febrile neutropenia [Recovered/Resolved]
  - Clostridium difficile colitis [Recovered/Resolved]

NARRATIVE: CASE EVENT DATE: 20150904
